FAERS Safety Report 7429864-4 (Version None)
Quarter: 2011Q2

REPORT INFORMATION
  Report Type: 
  Country: None (occurrence: None)
  Receive Date: 20110421
  Receipt Date: 20110210
  Transmission Date: 20111010
  Serious: Yes (Death, Other)
  Sender: FDA-Public Use
  Company Number: US-BAYER-200817028NA

PATIENT
  Age: 89 Year
  Sex: Male
  Weight: 78 kg

DRUGS (10)
  1. TRASYLOL [Suspect]
     Indication: CORONARY ARTERY BYPASS
     Dosage: PUMP PRIME 1000 IU AND LOADING DOSE OF 4 MIU
     Dates: start: 20051216, end: 20051216
  2. LEVOPHED [Concomitant]
     Dosage: UNREADABLE
     Route: 042
     Dates: start: 20051216, end: 20051216
  3. PLATELETS [Concomitant]
     Dosage: 1 UNIT
     Dates: start: 20051216
  4. PACKED RED BLOOD CELLS [Concomitant]
     Dosage: 1 UNIT
     Dates: start: 20051216
  5. PAVULON [Concomitant]
     Dosage: 15 MG
     Route: 042
     Dates: start: 20051216, end: 20051216
  6. CONTRAST MEDIA [Concomitant]
     Indication: CATHETERISATION CARDIAC
     Dosage: UNK
     Dates: start: 20051214
  7. FRESH FROZEN PLASMA [Concomitant]
     Dosage: I UNIT
     Dates: start: 20051216
  8. EPINEPHRINE [Concomitant]
     Dosage: UNREADABLE
     Route: 042
     Dates: start: 20051216, end: 20051216
  9. VERSED [Concomitant]
     Dosage: 2 MG
     Route: 042
     Dates: start: 20051216, end: 20051216
  10. NITROGLYCERIN [Concomitant]
     Dosage: UNREADABLE
     Route: 042
     Dates: start: 20051216, end: 20051216

REACTIONS (6)
  - PAIN [None]
  - ANHEDONIA [None]
  - RENAL FAILURE [None]
  - DEATH [None]
  - INJURY [None]
  - ILL-DEFINED DISORDER [None]
